FAERS Safety Report 7936388-4 (Version None)
Quarter: 2011Q4

REPORT INFORMATION
  Report Type: 
  Country: None (occurrence: None)
  Receive Date: 20111123
  Receipt Date: 20111117
  Transmission Date: 20120403
  Serious: Yes (Death, Hospitalization, Other)
  Sender: FDA-Public Use
  Company Number: US-VERTEX PHARMACEUTICALS INC.-AE-2011-002866

PATIENT
  Sex: Male

DRUGS (10)
  1. AMBIEN [Concomitant]
     Route: 048
  2. METOPROLOL TARTRATE [Concomitant]
     Route: 048
  3. ONGLYZA [Concomitant]
     Route: 048
  4. RIBAVIRIN [Concomitant]
     Indication: HEPATITIS C
     Route: 048
     Dates: start: 20110802
  5. INCIVEK [Suspect]
     Indication: HEPATITIS C
     Route: 048
     Dates: start: 20110802
  6. LIPITOR [Concomitant]
     Route: 048
     Dates: end: 20110701
  7. PEGASYS [Concomitant]
     Indication: HEPATITIS C
     Route: 058
     Dates: start: 20110802
  8. AXID [Concomitant]
     Route: 048
  9. CYMBALTA [Concomitant]
     Route: 048
  10. LANTUS [Concomitant]
     Route: 058

REACTIONS (12)
  - GENERALISED OEDEMA [None]
  - CLOSTRIDIAL INFECTION [None]
  - SEPSIS [None]
  - ABSCESS STERILE [None]
  - SCROTAL SWELLING [None]
  - SUBCUTANEOUS EMPHYSEMA [None]
  - INTENTIONAL DRUG MISUSE [None]
  - PANCYTOPENIA [None]
  - TREATMENT NONCOMPLIANCE [None]
  - MYOSITIS [None]
  - ASCITES [None]
  - SYSTEMIC INFLAMMATORY RESPONSE SYNDROME [None]
